FAERS Safety Report 23454425 (Version 2)
Quarter: 2024Q1

REPORT INFORMATION
  Report Type: Spontaneous
  Country: PL (occurrence: PL)
  Receive Date: 20240130
  Receipt Date: 20240213
  Transmission Date: 20240409
  Serious: Yes (Death, Other)
  Sender: FDA-Public Use
  Company Number: None

PATIENT
  Age: 54 Year
  Sex: Female

DRUGS (10)
  1. CARBOPLATIN [Suspect]
     Active Substance: CARBOPLATIN
     Indication: Breast cancer metastatic
     Dosage: CYCLICAL
     Route: 065
  2. CARBOPLATIN [Suspect]
     Active Substance: CARBOPLATIN
     Indication: Triple negative breast cancer
     Dosage: UNK, AREA UNDER THE CURVE (AUC) 2, ON DAYS 1 AND 8 OF THE CYCLE
     Route: 065
     Dates: start: 201707
  3. CAPECITABINE [Suspect]
     Active Substance: CAPECITABINE
     Indication: Product used for unknown indication
     Dosage: 3 CYCLES
     Route: 065
     Dates: start: 201904
  4. GEMCITABINE [Suspect]
     Active Substance: GEMCITABINE
     Indication: Breast cancer metastatic
     Dosage: CYCLICAL
     Route: 065
  5. GEMCITABINE [Suspect]
     Active Substance: GEMCITABINE
     Indication: Triple negative breast cancer
     Dosage: UNK, ON DAYS 1 AND 8 OF THE CYCLE
     Route: 065
     Dates: start: 201707
  6. PEMBROLIZUMAB [Suspect]
     Active Substance: PEMBROLIZUMAB
     Indication: Breast cancer metastatic
     Dosage: DAY 1 OF EACH CYCLE EVERY 21 DAYS
     Route: 065
  7. PEMBROLIZUMAB [Suspect]
     Active Substance: PEMBROLIZUMAB
     Indication: Triple negative breast cancer
  8. PREDNISONE [Concomitant]
     Active Substance: PREDNISONE
     Indication: Rash
     Dosage: 10 MILLIGRAM, 14 DAYS
     Route: 065
  9. ZOLEDRONIC ACID [Concomitant]
     Active Substance: ZOLEDRONIC ACID
     Indication: Osteolysis
     Dosage: UNK
     Route: 065
  10. ZOLEDRONIC ACID [Concomitant]
     Active Substance: ZOLEDRONIC ACID
     Dosage: UNK
     Route: 065
     Dates: start: 2017

REACTIONS (5)
  - Malignant neoplasm progression [Fatal]
  - Therapy non-responder [Fatal]
  - Rash [Recovered/Resolved]
  - Rash [Recovered/Resolved]
  - Off label use [Unknown]
